FAERS Safety Report 9034705 (Version 1)
Quarter: 2013Q1

REPORT INFORMATION
  Report Type: Spontaneous
  Country: GB (occurrence: GB)
  Receive Date: 20130128
  Receipt Date: 20130128
  Transmission Date: 20140127
  Serious: Yes (Other)
  Sender: FDA-Public Use
  Company Number: GB-GLAXOSMITHKLINE-B0860580A

PATIENT
  Sex: Female

DRUGS (2)
  1. TROBALT [Suspect]
     Indication: EPILEPSY
     Dates: start: 20121022
  2. TEGRETOL [Concomitant]

REACTIONS (5)
  - Fatigue [Recovering/Resolving]
  - Convulsion [Unknown]
  - Drug ineffective [Unknown]
  - Fall [Recovered/Resolved]
  - Head injury [Recovered/Resolved]
